FAERS Safety Report 10510369 (Version 1)
Quarter: 2014Q4

REPORT INFORMATION
  Report Type: Spontaneous
  Country: US (occurrence: None)
  Receive Date: 20141009
  Receipt Date: 20141009
  Transmission Date: 20150528
  Serious: Yes (Life-Threatening, Hospitalization, Disabling)
  Sender: FDA-Public Use
  Company Number: None

PATIENT
  Age: 73 Year
  Sex: Male
  Weight: 105.3 kg

DRUGS (1)
  1. CEFTRIAXONE. [Suspect]
     Active Substance: CEFTRIAXONE
     Indication: LEUKOCYTOSIS
     Route: 042
     Dates: start: 20140519, end: 20140519

REACTIONS (12)
  - Flushing [None]
  - Palpitations [None]
  - Wheezing [None]
  - Tachypnoea [None]
  - Tachycardia [None]
  - Cough [None]
  - Respiratory depression [None]
  - Hypotension [None]
  - Dyspnoea [None]
  - Oxygen saturation decreased [None]
  - Atrial fibrillation [None]
  - Erythema [None]

NARRATIVE: CASE EVENT DATE: 20140520
